FAERS Safety Report 24034317 (Version 3)
Quarter: 2024Q3

REPORT INFORMATION
  Report Type: Report from Study
  Country: US (occurrence: US)
  Receive Date: 20240701
  Receipt Date: 20240801
  Transmission Date: 20241016
  Serious: Yes (Hospitalization, Other)
  Sender: INSMED
  Company Number: US-INSMED, INC.-2024-02332-US

PATIENT
  Sex: Female

DRUGS (2)
  1. ARIKAYCE [Suspect]
     Active Substance: AMIKACIN
     Indication: Product used for unknown indication
     Dosage: 590 MILLIGRAM, QD
     Route: 055
     Dates: start: 20240603, end: 202406
  2. ALBUTEROL SULFATE [Concomitant]
     Active Substance: ALBUTEROL SULFATE
     Indication: Product used for unknown indication
     Dosage: UNK, UNK
     Route: 055

REACTIONS (19)
  - Increased upper airway secretion [Unknown]
  - Oxygen saturation decreased [Recovered/Resolved]
  - Asthma [Unknown]
  - Asthenia [Unknown]
  - Aphonia [Recovered/Resolved]
  - Chest discomfort [Unknown]
  - Drug hypersensitivity [Unknown]
  - Dyspnoea [Recovering/Resolving]
  - Chronic obstructive pulmonary disease [Unknown]
  - Pulmonary pain [Unknown]
  - Elder abuse [Unknown]
  - Dysgeusia [Recovering/Resolving]
  - Cough [Recovered/Resolved]
  - Productive cough [Recovering/Resolving]
  - Drug administered in wrong device [Unknown]
  - Incorrect dose administered [Unknown]
  - Accidental exposure to product [Unknown]
  - Inappropriate schedule of product administration [Unknown]
  - Therapy interrupted [Unknown]

NARRATIVE: CASE EVENT DATE: 20240101
